FAERS Safety Report 8512565-9 (Version None)
Quarter: 2012Q3

REPORT INFORMATION
  Report Type: 
  Country: None (occurrence: None)
  Receive Date: 20120716
  Receipt Date: 20120710
  Transmission Date: 20120928
  Serious: Yes (Other)
  Sender: FDA-Public Use
  Company Number: DE-ROCHE-1079133

PATIENT
  Sex: Male
  Weight: 75 kg

DRUGS (2)
  1. MABTHERA [Suspect]
     Indication: B-CELL LYMPHOMA
     Route: 065
     Dates: start: 20100818, end: 20120109
  2. MABTHERA [Suspect]
     Indication: NON-HODGKIN'S LYMPHOMA

REACTIONS (1)
  - BRONCHIAL CARCINOMA [None]
